FAERS Safety Report 18469391 (Version 1)
Quarter: 2020Q4

REPORT INFORMATION
  Report Type: Report from Study
  Country: DE (occurrence: DE)
  Receive Date: 20201105
  Receipt Date: 20201105
  Transmission Date: 20210114
  Serious: Yes (Hospitalization, Other)
  Sender: FDA-Public Use
  Company Number: DE-ASTRAZENECA-2020SF45172

PATIENT
  Age: 65 Year
  Sex: Female

DRUGS (1)
  1. OLAPARIB. [Suspect]
     Active Substance: OLAPARIB
     Indication: OVARIAN CANCER
     Dosage: UNKNOWN
     Route: 048

REACTIONS (2)
  - Anaemia [Recovered/Resolved]
  - Haematotoxicity [Recovered/Resolved]

NARRATIVE: CASE EVENT DATE: 2020
